FAERS Safety Report 15642132 (Version 1)
Quarter: 2018Q4

REPORT INFORMATION
  Report Type: Spontaneous
  Country: US (occurrence: US)
  Receive Date: 20181121
  Receipt Date: 20181121
  Transmission Date: 20190205
  Serious: Yes (Other)
  Sender: FDA-Public Use
  Company Number: US-JNJFOC-20181113347

PATIENT
  Sex: Male
  Weight: 7.26 kg

DRUGS (5)
  1. AVEENO BABY UNSPECIFIED [Suspect]
     Active Substance: COSMETICS
     Indication: PRODUCT USED FOR UNKNOWN INDICATION
     Route: 061
     Dates: start: 2018, end: 2018
  2. AVEENO BABY WASH + SHAMPOO 8 OZ [Suspect]
     Active Substance: COSMETICS
     Indication: REMOVAL OF INERT MATTER FROM SKIN OR SUBCUTANEOUS TISSUE
     Dosage: QUARTER SIZE AMOUNT ONCE A WEEK AT FIRST, THEN EVERY 2 TO 3 DAYS
     Route: 061
     Dates: start: 2018, end: 2018
  3. AVEENO BABY DAILY MOISTURE [Suspect]
     Active Substance: DIMETHICONE
     Indication: DRY SKIN PROPHYLAXIS
     Dosage: DIME TO NICKLE SIZE ONCE A WEEK FOR A WHILE, THEN EVERY 2 TO 3 DAYS
     Route: 061
     Dates: start: 2018, end: 2018
  4. AVEENO BABY CALMING COMFORT [Suspect]
     Active Substance: DIMETHICONE
     Indication: REMOVAL OF INERT MATTER FROM SKIN OR SUBCUTANEOUS TISSUE
     Dosage: QUARTER SIZE ONCE A WEEK, THEN EVERY 2 TO THREE DAYS
     Route: 061
     Dates: start: 2018, end: 2018
  5. RANITIDINE. [Concomitant]
     Active Substance: RANITIDINE
     Indication: PRODUCT USED FOR UNKNOWN INDICATION
     Route: 065

REACTIONS (1)
  - Application site rash [Recovered/Resolved]

NARRATIVE: CASE EVENT DATE: 2018
